FAERS Safety Report 18762773 (Version 1)
Quarter: 2021Q1

REPORT INFORMATION
  Report Type: Spontaneous
  Country: US (occurrence: US)
  Receive Date: 20210119
  Receipt Date: 20210119
  Transmission Date: 20210419
  Serious: Yes (Other)
  Sender: FDA-Public Use
  Company Number: None

PATIENT
  Age: 7 Year
  Sex: Female
  Weight: 34.47 kg

DRUGS (2)
  1. LANSOPRAZOLE SOLUTAB [Suspect]
     Active Substance: LANSOPRAZOLE
     Indication: VOMITING
     Route: 048
     Dates: start: 201802
  2. LANSOPRAZOLE SOLUTAB [Suspect]
     Active Substance: LANSOPRAZOLE
     Indication: GASTROOESOPHAGEAL REFLUX DISEASE
     Route: 048
     Dates: start: 201802

REACTIONS (3)
  - Gastrointestinal disorder [None]
  - Product substitution issue [None]
  - Vomiting [None]

NARRATIVE: CASE EVENT DATE: 20180201
